FAERS Safety Report 12088606 (Version 1)
Quarter: 2016Q1

REPORT INFORMATION
  Report Type: Spontaneous
  Country: US (occurrence: US)
  Receive Date: 20160218
  Receipt Date: 20160218
  Transmission Date: 20160526
  Serious: No
  Sender: FDA-Public Use
  Company Number: US-ASTRAZENECA-2016SE14006

PATIENT
  Age: 25342 Day
  Sex: Female
  Weight: 72.6 kg

DRUGS (6)
  1. LEVEMIR [Concomitant]
     Active Substance: INSULIN DETEMIR
     Indication: TYPE 2 DIABETES MELLITUS
     Route: 058
     Dates: start: 20160202
  2. GLIMEPIRIDE. [Concomitant]
     Active Substance: GLIMEPIRIDE
     Indication: TYPE 2 DIABETES MELLITUS
     Route: 048
     Dates: start: 2015
  3. TRAMADOL. [Concomitant]
     Active Substance: TRAMADOL
     Indication: PAIN
     Route: 048
     Dates: start: 20160124
  4. AMITRIPTYLINE [Concomitant]
     Active Substance: AMITRIPTYLINE
     Indication: TYPE 2 DIABETES MELLITUS
     Route: 048
     Dates: start: 20160124
  5. BYDUREON [Suspect]
     Active Substance: EXENATIDE
     Indication: NEUROPATHY PERIPHERAL
     Route: 058
     Dates: start: 20160202
  6. GABAPENTIN. [Concomitant]
     Active Substance: GABAPENTIN
     Route: 048
     Dates: start: 20160124

REACTIONS (1)
  - Neuralgia [Unknown]

NARRATIVE: CASE EVENT DATE: 20160202
